FAERS Safety Report 13987737 (Version 2)
Quarter: 2018Q1

REPORT INFORMATION
  Report Type: Spontaneous
  Country: GB (occurrence: GB)
  Receive Date: 20170919
  Receipt Date: 20180123
  Transmission Date: 20180508
  Serious: Yes (Death)
  Sender: FDA-Public Use
  Company Number: PHFR2017GB007867

PATIENT
  Age: 73 Year
  Sex: Male

DRUGS (4)
  1. LORAZEPAM. [Suspect]
     Active Substance: LORAZEPAM
     Indication: PRODUCT USED FOR UNKNOWN INDICATION
     Dosage: UNK
     Route: 065
     Dates: start: 20160928, end: 20161005
  2. RISPERIDONE. [Suspect]
     Active Substance: RISPERIDONE
     Dosage: 1 DF, UNK
     Route: 065
     Dates: start: 20161020
  3. RISPERIDONE. [Suspect]
     Active Substance: RISPERIDONE
     Indication: AGGRESSION
     Dosage: UNK
     Route: 065
     Dates: start: 20160928, end: 20161005
  4. ZOPICLONE [Concomitant]
     Active Substance: ZOPICLONE
     Indication: SLEEP DISORDER
     Dosage: UNK
     Route: 065

REACTIONS (11)
  - Dementia Alzheimer^s type [Fatal]
  - Staring [Fatal]
  - Decreased appetite [Fatal]
  - Feeling abnormal [Fatal]
  - Incontinence [Fatal]
  - Aphasia [Fatal]
  - Gait disturbance [Fatal]
  - Dysphagia [Fatal]
  - Myoclonus [Fatal]
  - Somnolence [Fatal]
  - Dementia [Fatal]
